FAERS Safety Report 6628095-5 (Version None)
Quarter: 2010Q1

REPORT INFORMATION
  Report Type: 
  Country: None (occurrence: None)
  Receive Date: 20100311
  Receipt Date: 20091102
  Transmission Date: 20100710
  Serious: No
  Sender: FDA-Public Use
  Company Number: A0807214A

PATIENT
  Sex: Male

DRUGS (1)
  1. NICORETTE [Suspect]
     Indication: TOBACCO USER

REACTIONS (2)
  - NICOTINE DEPENDENCE [None]
  - PRODUCT QUALITY ISSUE [None]
